FAERS Safety Report 8934037 (Version 3)
Quarter: 2012Q4

REPORT INFORMATION
  Report Type: 
  Country: FR (occurrence: FR)
  Receive Date: 20121129
  Receipt Date: 20121228
  Transmission Date: 20130627
  Serious: Yes (Other)
  Sender: FDA-Public Use
  Company Number: FR-NOVOPROD-364652

PATIENT
  Sex: Male

DRUGS (1)
  1. NORDITROPIN [Suspect]
     Indication: PRODUCT USED FOR UNKNOWN INDICATION
     Route: 065

REACTIONS (3)
  - Product counterfeit [Unknown]
  - Suicide attempt [Unknown]
  - Depression [Unknown]
